FAERS Safety Report 9031628 (Version 16)
Quarter: 2021Q1

REPORT INFORMATION
  Report Type: Other
  Country: CA (occurrence: CA)
  Receive Date: 20130124
  Receipt Date: 20210323
  Transmission Date: 20210420
  Serious: Yes (Hospitalization, Other)
  Sender: FDA-Public Use
  Company Number: CA-ROCHE-796141

PATIENT
  Age: 70 Year
  Sex: Female
  Weight: 80.7 kg

DRUGS (32)
  1. RITUXAN [Suspect]
     Active Substance: RITUXIMAB
     Route: 041
     Dates: start: 20190523
  2. METHOTREXATE. [Concomitant]
     Active Substance: METHOTREXATE
     Route: 048
  3. RITUXAN [Suspect]
     Active Substance: RITUXIMAB
     Route: 042
     Dates: start: 20160822, end: 20181122
  4. BABY ASPIRIN [Concomitant]
     Active Substance: ASPIRIN
     Dosage: DRUG:BABY ASPIRIN
  5. COVERSYL [Concomitant]
     Active Substance: PERINDOPRIL
  6. DIPHENHYDRAMINE HCL [Concomitant]
     Active Substance: DIPHENHYDRAMINE HYDROCHLORIDE
     Route: 048
     Dates: start: 20100223
  7. ACETAMINOPHEN. [Concomitant]
     Active Substance: ACETAMINOPHEN
     Indication: PREMEDICATION
     Route: 048
     Dates: start: 20070508
  8. CRESTOR [Concomitant]
     Active Substance: ROSUVASTATIN CALCIUM
  9. ACETAMINOPHEN. [Concomitant]
     Active Substance: ACETAMINOPHEN
     Route: 048
     Dates: start: 20100223
  10. ASPIRIN. [Concomitant]
     Active Substance: ASPIRIN
     Route: 048
  11. BENADRYL [Concomitant]
     Active Substance: DIPHENHYDRAMINE HYDROCHLORIDE
     Indication: PREMEDICATION
     Route: 048
     Dates: start: 20100223
  12. CITALOPRAM [Concomitant]
     Active Substance: CITALOPRAM HYDROBROMIDE
     Route: 048
  13. ROSUVASTATIN. [Concomitant]
     Active Substance: ROSUVASTATIN
     Route: 048
  14. TYLENOL [Concomitant]
     Active Substance: ACETAMINOPHEN
     Indication: PREMEDICATION
     Route: 048
     Dates: start: 20100223
  15. RITUXAN [Suspect]
     Active Substance: RITUXIMAB
     Indication: RHEUMATOID ARTHRITIS
     Dosage: ON 11 AUGUST 2011, DAY 15 WAS CANCELLED. LAST INFUSION WAS ON 15/AUG/2013.
     Route: 042
     Dates: start: 20070508, end: 20141119
  16. BISOPROLOL [Concomitant]
     Active Substance: BISOPROLOL
  17. SOLU?CORTEF [Concomitant]
     Active Substance: HYDROCORTISONE SODIUM SUCCINATE
     Indication: PREMEDICATION
     Route: 042
     Dates: start: 20140411
  18. SOLU?MEDROL [Concomitant]
     Active Substance: METHYLPREDNISOLONE SODIUM SUCCINATE
     Indication: PREMEDICATION
     Route: 042
     Dates: start: 20110728, end: 20130815
  19. RABEPRAZOLE [Concomitant]
     Active Substance: RABEPRAZOLE
  20. METHYLPREDNISOLONE. [Concomitant]
     Active Substance: METHYLPREDNISOLONE
     Indication: PREMEDICATION
     Route: 042
     Dates: start: 20070508
  21. METHYLPREDNISOLONE. [Concomitant]
     Active Substance: METHYLPREDNISOLONE
     Route: 042
     Dates: start: 20110728
  22. PROLIA [Concomitant]
     Active Substance: DENOSUMAB
  23. CIPRALEX [Concomitant]
     Active Substance: ESCITALOPRAM OXALATE
  24. FOLIC ACID. [Concomitant]
     Active Substance: FOLIC ACID
     Route: 048
  25. CHOLESTYRAMINE. [Concomitant]
     Active Substance: CHOLESTYRAMINE
     Route: 048
  26. DEPO?MEDROL [Concomitant]
     Active Substance: METHYLPREDNISOLONE ACETATE
  27. NOVO?HYDRAZIDE [Concomitant]
     Active Substance: HYDROCHLOROTHIAZIDE
  28. CELEBREX [Concomitant]
     Active Substance: CELECOXIB
     Route: 048
  29. VITAMIN D3 [Concomitant]
     Active Substance: CHOLECALCIFEROL
     Route: 048
  30. RITUXAN [Suspect]
     Active Substance: RITUXIMAB
     Route: 042
     Dates: start: 20100223
  31. PREDNISONE. [Concomitant]
     Active Substance: PREDNISONE
  32. DIPHENHYDRAMINE HCL [Concomitant]
     Active Substance: DIPHENHYDRAMINE HYDROCHLORIDE
     Indication: PREMEDICATION
     Route: 048
     Dates: start: 20070508

REACTIONS (26)
  - Pain [Not Recovered/Not Resolved]
  - Heart rate decreased [Unknown]
  - Blood pressure increased [Unknown]
  - Pain in extremity [Unknown]
  - Haemorrhage [Unknown]
  - Weight decreased [Unknown]
  - Limb mass [Unknown]
  - Osteoporosis [Unknown]
  - Anxiety [Unknown]
  - Face injury [Unknown]
  - Hip fracture [Unknown]
  - Nodule [Not Recovered/Not Resolved]
  - Haemoglobin decreased [Unknown]
  - Blood pressure fluctuation [Unknown]
  - Fall [Unknown]
  - Gastric cancer [Unknown]
  - Deafness unilateral [Not Recovered/Not Resolved]
  - Heart rate abnormal [Recovering/Resolving]
  - Hypotension [Unknown]
  - Hyperkeratosis [Recovered/Resolved]
  - Foot deformity [Recovered/Resolved]
  - Rheumatoid arthritis [Unknown]
  - Arthropathy [Recovered/Resolved]
  - Dyspepsia [Unknown]
  - Oxygen saturation decreased [Unknown]
  - Arthralgia [Unknown]

NARRATIVE: CASE EVENT DATE: 2011
